FAERS Safety Report 13008577 (Version 2)
Quarter: 2016Q4

REPORT INFORMATION
  Report Type: Spontaneous
  Country: US (occurrence: US)
  Receive Date: 20161208
  Receipt Date: 20161215
  Transmission Date: 20170207
  Serious: No
  Sender: FDA-Public Use
  Company Number: US-PFIZER INC-2016559638

PATIENT
  Age: 91 Year
  Sex: Female

DRUGS (3)
  1. DILTIAZEM HCL [Suspect]
     Active Substance: DILTIAZEM HYDROCHLORIDE
     Dosage: UNK
  2. BACTRIM [Suspect]
     Active Substance: SULFAMETHOXAZOLE\TRIMETHOPRIM
     Dosage: UNK
  3. ALDACTONE [Suspect]
     Active Substance: SPIRONOLACTONE
     Dosage: UNK

REACTIONS (1)
  - Drug hypersensitivity [Unknown]
